FAERS Safety Report 18135920 (Version 1)
Quarter: 2020Q3

REPORT INFORMATION
  Report Type: Spontaneous
  Country: FR (occurrence: FR)
  Receive Date: 20200811
  Receipt Date: 20200811
  Transmission Date: 20201103
  Serious: Yes (Other)
  Sender: FDA-Public Use
  Company Number: FR-ROCHE-2654471

PATIENT
  Age: 82 Year
  Sex: Female

DRUGS (4)
  1. VALIUM [Suspect]
     Active Substance: DIAZEPAM
     Indication: NERVOUSNESS
     Route: 065
  2. VALIUM [Suspect]
     Active Substance: DIAZEPAM
     Indication: NEUROLEPTIC MALIGNANT SYNDROME
  3. VALIUM [Suspect]
     Active Substance: DIAZEPAM
     Indication: MALAISE
  4. APROVEL [Suspect]
     Active Substance: IRBESARTAN
     Indication: HYPERTENSION
     Dosage: TOOK IT 3 OR 4 TIMES
     Route: 065

REACTIONS (7)
  - Hypersensitivity [Not Recovered/Not Resolved]
  - Angioedema [Unknown]
  - Drug ineffective [Unknown]
  - Eye disorder [Unknown]
  - Peripheral swelling [Not Recovered/Not Resolved]
  - Lacrimation increased [Unknown]
  - Pruritus [Not Recovered/Not Resolved]
